FAERS Safety Report 7063684-8 (Version None)
Quarter: 2010Q4

REPORT INFORMATION
  Report Type: 
  Country: None (occurrence: None)
  Receive Date: 20101026
  Receipt Date: 20101012
  Transmission Date: 20110411
  Serious: No
  Sender: FDA-Public Use
  Company Number: US-ABBOTT-10P-163-0659848-00

PATIENT
  Sex: Female

DRUGS (3)
  1. LUPRON [Suspect]
     Indication: PRODUCT USED FOR UNKNOWN INDICATION
     Route: 050
  2. GONAL-F [Concomitant]
     Indication: PRODUCT USED FOR UNKNOWN INDICATION
  3. MENOPUR [Concomitant]
     Indication: PRODUCT USED FOR UNKNOWN INDICATION

REACTIONS (5)
  - CRYING [None]
  - FEELING HOT [None]
  - HYPERSENSITIVITY [None]
  - MOOD ALTERED [None]
  - SOMNOLENCE [None]
